FAERS Safety Report 22644928 (Version 1)
Quarter: 2023Q2

REPORT INFORMATION
  Report Type: Spontaneous
  Country: US (occurrence: None)
  Receive Date: 20230625
  Receipt Date: 20230625
  Transmission Date: 20230721
  Serious: Yes (Other)
  Sender: FDA-Public Use
  Company Number: None

PATIENT
  Age: 52 Year
  Sex: Female
  Weight: 72 kg

DRUGS (9)
  1. REPATHA [Suspect]
     Active Substance: EVOLOCUMAB
     Indication: Type IIa hyperlipidaemia
     Dosage: OTHER QUANTITY : 1 INJECTION(S);?FREQUENCY : EVERY OTHER WEEK;?OTHER ROUTE : SUBCUTANEOUS INJECTION;
     Route: 050
     Dates: start: 20220830, end: 20230619
  2. LEVOTHYROXINE [Concomitant]
     Active Substance: LEVOTHYROXINE
  3. OZEMPIC [Concomitant]
     Active Substance: SEMAGLUTIDE
  4. CELEBREX [Concomitant]
     Active Substance: CELECOXIB
  5. IMITREX [Concomitant]
     Active Substance: SUMATRIPTAN SUCCINATE
  6. NURTEC ODT [Concomitant]
     Active Substance: RIMEGEPANT SULFATE
  7. QUERCETIN [Concomitant]
     Active Substance: QUERCETIN
  8. VITAMIN D [Concomitant]
     Active Substance: VITAMIN D NOS
  9. VITAMIN B [Concomitant]
     Active Substance: VITAMIN B

REACTIONS (4)
  - Nausea [None]
  - Vomiting [None]
  - Hepatomegaly [None]
  - Hepatic steatosis [None]

NARRATIVE: CASE EVENT DATE: 20230616
